FAERS Safety Report 18211491 (Version 1)
Quarter: 2020Q3

REPORT INFORMATION
  Report Type: Report from Study
  Country: None (occurrence: AR)
  Receive Date: 20200831
  Receipt Date: 20200831
  Transmission Date: 20201103
  Serious: Yes (Hospitalization)
  Sender: FDA-Public Use
  Company Number: AR-ABBVIE-20K-007-3546915-00

PATIENT
  Age: 23 Year
  Sex: Male

DRUGS (2)
  1. HUMIRA [Suspect]
     Active Substance: ADALIMUMAB
     Route: 058
  2. HUMIRA [Suspect]
     Active Substance: ADALIMUMAB
     Indication: COLITIS ULCERATIVE
     Route: 058
     Dates: start: 20190125

REACTIONS (5)
  - Colitis ulcerative [Recovering/Resolving]
  - Pharyngeal ulceration [Recovering/Resolving]
  - Drug ineffective [Unknown]
  - Crohn^s disease [Unknown]
  - Oesophageal ulcer [Recovering/Resolving]

NARRATIVE: CASE EVENT DATE: 20200725
